FAERS Safety Report 25350531 (Version 1)
Quarter: 2025Q2

REPORT INFORMATION
  Report Type: Report from Study
  Country: GB (occurrence: GB)
  Receive Date: 20250523
  Receipt Date: 20250523
  Transmission Date: 20250716
  Serious: Yes (Death, Hospitalization, Other)
  Sender: ROCHE
  Company Number: GB-ROCHE-10000288847

PATIENT

DRUGS (5)
  1. RITUXIMAB [Suspect]
     Active Substance: RITUXIMAB
     Indication: Anti-neutrophil cytoplasmic antibody positive vasculitis
     Dosage: MAXIMUM 2 DOSES
     Route: 042
  2. CYCLOPHOSPHAMIDE [Suspect]
     Active Substance: CYCLOPHOSPHAMIDE
     Indication: Anti-neutrophil cytoplasmic antibody positive vasculitis
     Dosage: MAXIMUM 2 DOSES
     Route: 042
  3. AZATHIOPRINE [Suspect]
     Active Substance: AZATHIOPRINE
     Indication: Anti-neutrophil cytoplasmic antibody positive vasculitis
     Route: 065
  4. PREDNISOLONE [Suspect]
     Active Substance: PREDNISOLONE
     Indication: Anti-neutrophil cytoplasmic antibody positive vasculitis
     Route: 048
  5. SULFAMETHOXAZOLE\TRIMETHOPRIM [Concomitant]
     Active Substance: SULFAMETHOXAZOLE\TRIMETHOPRIM
     Indication: Prophylaxis

REACTIONS (20)
  - COVID-19 [Unknown]
  - Herpes zoster [Unknown]
  - Lymphopenia [Unknown]
  - Neutropenia [Unknown]
  - Cardiovascular disorder [Unknown]
  - Osteoporosis [Unknown]
  - Cataract [Unknown]
  - COVID-19 pneumonia [Fatal]
  - Pneumonia [Fatal]
  - Weight increased [Unknown]
  - Hypogammaglobulinaemia [Unknown]
  - Skin cancer [Unknown]
  - Bladder transitional cell carcinoma [Unknown]
  - Ovarian cancer [Unknown]
  - Pancreatic carcinoma [Unknown]
  - Cytomegalovirus infection [Unknown]
  - Respiratory tract infection [Unknown]
  - Urinary tract infection [Unknown]
  - Cellulitis [Unknown]
  - Peritonitis [Fatal]
